FAERS Safety Report 4741681-2 (Version None)
Quarter: 2005Q3

REPORT INFORMATION
  Report Type: 
  Country: None (occurrence: None)
  Receive Date: 20050801
  Receipt Date: 20050622
  Transmission Date: 20060218
  Serious: No
  Sender: FDA-Public Use
  Company Number: 2005PV000106

PATIENT
  Age: 56 Year
  Sex: Female
  Weight: 91.6266 kg

DRUGS (10)
  1. BYETTA [Suspect]
     Indication: DIABETES MELLITUS NON-INSULIN-DEPENDENT
     Dosage: 5 UG; BID; SC
     Route: 058
     Dates: start: 20050615
  2. GLUCOVANCE [Concomitant]
  3. REGULAR INSULIN [Concomitant]
  4. NPH INSULIN [Concomitant]
  5. NEXIUM [Concomitant]
  6. MOBIC [Concomitant]
  7. EVISTA [Concomitant]
  8. DARVOCET [Concomitant]
  9. LORTAB [Concomitant]
  10. ATIVAN [Concomitant]

REACTIONS (3)
  - ASTHENIA [None]
  - HYPERHIDROSIS [None]
  - NAUSEA [None]
